FAERS Safety Report 16960271 (Version 5)
Quarter: 2020Q4

REPORT INFORMATION
  Report Type: Spontaneous
  Country: US (occurrence: US)
  Receive Date: 20191025
  Receipt Date: 20201208
  Transmission Date: 20210113
  Serious: No
  Sender: FDA-Public Use
  Company Number: US-PFIZER INC-2019459569

PATIENT
  Age: 67 Year
  Sex: Female

DRUGS (2)
  1. LYRICA [Suspect]
     Active Substance: PREGABALIN
     Dosage: 300 MG, ONCE A DAY (2 AT BEDTIME)
     Route: 048
  2. LYRICA [Suspect]
     Active Substance: PREGABALIN
     Dosage: 150 MG, UNK
     Route: 048

REACTIONS (7)
  - Fibromyalgia [Unknown]
  - Memory impairment [Unknown]
  - Asthma [Unknown]
  - Pain [Unknown]
  - Dyspnoea [Unknown]
  - COVID-19 [Unknown]
  - Neck pain [Unknown]
